FAERS Safety Report 23861998 (Version 1)
Quarter: 2024Q2

REPORT INFORMATION
  Report Type: Other
  Country: GB (occurrence: GB)
  Receive Date: 20240516
  Receipt Date: 20240516
  Transmission Date: 20240716
  Serious: Yes (Other)
  Sender: FDA-Public Use
  Company Number: GB-GLENMARK PHARMACEUTICALS-2024GMK090676

PATIENT

DRUGS (6)
  1. MONTELUKAST SODIUM [Suspect]
     Active Substance: MONTELUKAST SODIUM
     Indication: Asthma
     Dosage: 1 DOSAGE FORM, AT NIGHT
     Route: 065
     Dates: start: 20240402, end: 20240424
  2. ERYTHROMYCIN [Concomitant]
     Active Substance: ERYTHROMYCIN
     Indication: Asthma
     Dosage: 4 DOSAGE FORM, QID (4 TWICE DAILY FOR 7 DAYS)
     Route: 065
     Dates: start: 20240306, end: 20240418
  3. FEXOFENADINE [Concomitant]
     Active Substance: FEXOFENADINE HYDROCHLORIDE
     Indication: Asthma
     Dosage: 1 DOSAGE FORM
     Route: 065
     Dates: start: 20240402
  4. HYLO FORTE [Concomitant]
     Indication: Product used for unknown indication
     Dosage: 1 DOSAGE FORM, 10ML, APPLY
     Route: 065
     Dates: start: 20240312, end: 20240424
  5. MICONAZOLE [Concomitant]
     Active Substance: MICONAZOLE
     Indication: Rash
     Dosage: 1 DOSAGE FORM, BID
     Route: 065
     Dates: start: 20240312, end: 20240424
  6. UNSPECIFIED INGREDIENT [Concomitant]
     Active Substance: UNSPECIFIED INGREDIENT
     Indication: Product used for unknown indication
     Dosage: UNK
     Route: 055

REACTIONS (5)
  - Nasal dryness [Unknown]
  - Dry mouth [Unknown]
  - Contusion [Unknown]
  - Paraesthesia [Unknown]
  - Headache [Recovered/Resolved]

NARRATIVE: CASE EVENT DATE: 20240403
